FAERS Safety Report 7936639-6 (Version None)
Quarter: 2011Q4

REPORT INFORMATION
  Report Type: 
  Country: None (occurrence: None)
  Receive Date: 20111123
  Receipt Date: 20110915
  Transmission Date: 20120403
  Serious: No
  Sender: FDA-Public Use
  Company Number: US-BAYER-2011-086991

PATIENT
  Age: 66 Year
  Sex: Male

DRUGS (8)
  1. GINSENG [Concomitant]
  2. SINGULAIR [Concomitant]
  3. FISH OIL [Concomitant]
  4. LEVITRA [Suspect]
     Dosage: 20 MG, UNK
     Dates: start: 20051001, end: 20110910
  5. PROBIOTICS [Concomitant]
  6. VITAMIN D [Concomitant]
  7. XLEAR NASAL WASH [Concomitant]
  8. VITAMIN TAB [Concomitant]

REACTIONS (4)
  - LIP SWELLING [None]
  - BURNING SENSATION [None]
  - HYPOAESTHESIA ORAL [None]
  - PARAESTHESIA ORAL [None]
